FAERS Safety Report 26148255 (Version 2)
Quarter: 2025Q4

REPORT INFORMATION
  Report Type: Spontaneous
  Country: US (occurrence: US)
  Receive Date: 20251212
  Receipt Date: 20251217
  Transmission Date: 20260117
  Serious: Yes (Other)
  Sender: ABBVIE
  Company Number: US-ABBVIE-6586029

PATIENT
  Age: 38 Year
  Sex: Female

DRUGS (2)
  1. HUMIRA [Suspect]
     Active Substance: ADALIMUMAB
     Indication: Crohn^s disease
     Dosage: FORM OF STRENGTH 40 MG/04ML 2 PENS
     Route: 058
  2. HUMIRA [Suspect]
     Active Substance: ADALIMUMAB
     Indication: Rheumatoid arthritis

REACTIONS (6)
  - Thyroid operation [Unknown]
  - Device defective [Unknown]
  - Needle issue [Unknown]
  - Muscle spasms [Unknown]
  - Blood calcium decreased [Unknown]
  - Device issue [Unknown]

NARRATIVE: CASE EVENT DATE: 20250101
